FAERS Safety Report 6329367-4 (Version None)
Quarter: 2009Q3

REPORT INFORMATION
  Report Type: 
  Country: None (occurrence: None)
  Receive Date: 20090826
  Receipt Date: 20090821
  Transmission Date: 20100115
  Serious: Yes (Other)
  Sender: FDA-Public Use
  Company Number: RU-AVENTIS-200919211GDDC

PATIENT
  Age: 54 Year
  Sex: Female
  Weight: 98 kg

DRUGS (2)
  1. APIDRA [Suspect]
     Indication: DIABETES MELLITUS
     Route: 058
     Dates: start: 20090724, end: 20090724
  2. LANTUS [Concomitant]
     Indication: DIABETES MELLITUS
     Route: 058
     Dates: start: 20040101

REACTIONS (4)
  - ASTHENIA [None]
  - DYSPNOEA [None]
  - LARYNGEAL OEDEMA [None]
  - OEDEMA [None]
